FAERS Safety Report 5723773-4 (Version None)
Quarter: 2008Q2

REPORT INFORMATION
  Report Type: 
  Country: None (occurrence: None)
  Receive Date: 20080430
  Receipt Date: 20080421
  Transmission Date: 20081010
  Serious: Yes (Hospitalization)
  Sender: FDA-Public Use
  Company Number: US-MERCK-0804USA04598

PATIENT
  Age: 56 Year
  Sex: Male

DRUGS (16)
  1. ZOCOR [Suspect]
     Indication: BLOOD CHOLESTEROL INCREASED
     Route: 048
     Dates: start: 20060101, end: 20071001
  2. ZOCOR [Suspect]
     Route: 048
  3. AMIODARONE [Concomitant]
     Route: 065
  4. PRINIVIL [Concomitant]
     Route: 048
  5. COREG [Concomitant]
     Route: 065
  6. NORVASC [Concomitant]
     Route: 065
  7. NASONEX [Concomitant]
     Route: 065
  8. TRAZODONE HYDROCHLORIDE [Concomitant]
     Route: 065
  9. ISOSORBIDE [Concomitant]
     Route: 065
  10. LORAZEPAM [Concomitant]
     Route: 065
  11. SOTALOL HYDROCHLORIDE [Concomitant]
     Route: 065
  12. HYDRALAZINE [Concomitant]
     Route: 065
  13. WARFARIN [Concomitant]
     Route: 065
  14. PAROXETINE [Concomitant]
     Route: 065
  15. DIOVAN [Concomitant]
     Route: 065
  16. PREVACID [Concomitant]
     Route: 065

REACTIONS (3)
  - LIVER DISORDER [None]
  - PALPITATIONS [None]
  - THYROID DISORDER [None]
